FAERS Safety Report 9753168 (Version 1)
Quarter: 2013Q4

REPORT INFORMATION
  Report Type: Spontaneous
  Country: US (occurrence: US)
  Receive Date: 20131213
  Receipt Date: 20131213
  Transmission Date: 20140711
  Serious: No
  Sender: FDA-Public Use
  Company Number: US-GILEAD-2010-0026752

PATIENT
  Age: 85 Year
  Sex: Female

DRUGS (15)
  1. LETAIRIS [Suspect]
     Indication: PULMONARY ARTERIAL HYPERTENSION
     Route: 048
     Dates: start: 20091209
  2. ATENOLOL [Concomitant]
  3. ADVAIR [Concomitant]
  4. CLONAZEPAM [Concomitant]
  5. POTASSIUM [Concomitant]
  6. CATAPRES [Concomitant]
  7. VIACTIV [Concomitant]
  8. ASPIRIN [Concomitant]
  9. PREDNISONE [Concomitant]
  10. FUROSEMIDE [Concomitant]
  11. ZOLOFT [Concomitant]
  12. PROBENECID [Concomitant]
  13. TOPROL XL [Concomitant]
  14. LIPITOR [Concomitant]
  15. DILANTIN [Concomitant]

REACTIONS (1)
  - Local swelling [Not Recovered/Not Resolved]
